FAERS Safety Report 16969762 (Version 1)
Quarter: 2019Q4

REPORT INFORMATION
  Report Type: Report from Study
  Country: FR (occurrence: FR)
  Receive Date: 20191029
  Receipt Date: 20191029
  Transmission Date: 20200122
  Serious: Yes (Other)
  Sender: FDA-Public Use
  Company Number: FR-B.I. PHARMACEUTICALS,INC./RIDGEFIELD-2019-BI-109482

PATIENT
  Sex: Female

DRUGS (1)
  1. SPIRIVA [Suspect]
     Active Substance: TIOTROPIUM BROMIDE MONOHYDRATE
     Indication: PRODUCT USED FOR UNKNOWN INDICATION
     Route: 055

REACTIONS (5)
  - Laryngeal oedema [Recovered/Resolved]
  - Pharyngeal disorder [Not Recovered/Not Resolved]
  - Skin oedema [Recovered/Resolved]
  - Nasal disorder [Not Recovered/Not Resolved]
  - Ear disorder [Not Recovered/Not Resolved]
